FAERS Safety Report 7974065-4 (Version None)
Quarter: 2011Q4

REPORT INFORMATION
  Report Type: 
  Country: None (occurrence: None)
  Receive Date: 20111213
  Receipt Date: 20111129
  Transmission Date: 20120403
  Serious: Yes (Hospitalization)
  Sender: FDA-Public Use
  Company Number: US-ROCHE-1020944

PATIENT
  Sex: Female
  Weight: 68 kg

DRUGS (20)
  1. NEURONTIN [Concomitant]
     Indication: PARAESTHESIA
     Route: 048
     Dates: start: 20071109
  2. ZOLOFT [Concomitant]
     Indication: DEPRESSION
     Route: 048
     Dates: start: 20050101
  3. ZYRTEC [Concomitant]
     Indication: SEASONAL ALLERGY
     Route: 048
     Dates: start: 20040101
  4. DIOVAN HCT [Concomitant]
     Indication: HYPERTENSION
     Route: 048
     Dates: start: 20030101
  5. ACETAMINOPHEN [Concomitant]
     Indication: HEADACHE
     Route: 048
     Dates: start: 19660101
  6. AMBIEN [Concomitant]
     Indication: INSOMNIA
     Route: 048
     Dates: start: 20100609
  7. REQUIP [Concomitant]
     Indication: RESTLESS LEGS SYNDROME
     Route: 048
     Dates: start: 20010101
  8. PHENERGAN [Concomitant]
     Indication: NAUSEA
     Route: 048
     Dates: start: 20111006, end: 20111013
  9. BI 201335 (HCV PROTEASE INHIBITOR) [Suspect]
     Indication: HEPATITIS C
     Route: 048
     Dates: start: 20110829, end: 20111023
  10. PEGINTERFERON ALFA-2A [Suspect]
     Indication: HEPATITIS C
     Route: 058
     Dates: start: 20110829, end: 20111017
  11. CALCIUM CARBONATE [Concomitant]
     Indication: VITAMIN SUPPLEMENTATION
     Route: 048
     Dates: start: 20110401
  12. OMEPRAZOLE [Concomitant]
     Indication: GASTROOESOPHAGEAL REFLUX DISEASE
     Route: 048
     Dates: start: 20100809
  13. ACETONIDE CREAM (UNK INGREDIENTS) [Concomitant]
     Indication: RASH
     Route: 061
     Dates: start: 20110912, end: 20111006
  14. COPEGUS [Suspect]
     Indication: HEPATITIS C
     Route: 048
     Dates: start: 20110829, end: 20111023
  15. LORTAB [Concomitant]
     Indication: ARTHRALGIA
     Route: 048
     Dates: start: 20070101
  16. ZYRTEC [Concomitant]
  17. LORTAB [Concomitant]
     Indication: BACK PAIN
  18. IMODIUM [Concomitant]
     Indication: DIARRHOEA
     Route: 048
     Dates: start: 20110926
  19. PHENERGAN [Concomitant]
     Indication: VOMITING
  20. DIPHENHYDRAMINE HCL [Concomitant]
     Indication: RASH
     Route: 048
     Dates: start: 20110912, end: 20111006

REACTIONS (28)
  - PRURITUS [None]
  - AMNESIA [None]
  - BLOOD PRESSURE DIASTOLIC DECREASED [None]
  - HAEMATOCRIT DECREASED [None]
  - ASTHENIA [None]
  - AMMONIA DECREASED [None]
  - FATIGUE [None]
  - APHASIA [None]
  - DIALYSIS [None]
  - ACTIVITIES OF DAILY LIVING IMPAIRED [None]
  - HYPOPHAGIA [None]
  - BLOOD POTASSIUM INCREASED [None]
  - DIARRHOEA [None]
  - RASH [None]
  - VOMITING [None]
  - CONFUSIONAL STATE [None]
  - RENAL TUBULAR NECROSIS [None]
  - RENAL FAILURE ACUTE [None]
  - GAIT DISTURBANCE [None]
  - DECREASED APPETITE [None]
  - HAEMOGLOBIN DECREASED [None]
  - METABOLIC ACIDOSIS [None]
  - AZOTAEMIA [None]
  - RED BLOOD CELL COUNT DECREASED [None]
  - NAUSEA [None]
  - PYREXIA [None]
  - CHILLS [None]
  - BLOOD GLUCOSE INCREASED [None]
